FAERS Safety Report 10903079 (Version 3)
Quarter: 2015Q2

REPORT INFORMATION
  Report Type: Spontaneous
  Country: US (occurrence: US)
  Receive Date: 20150311
  Receipt Date: 20150515
  Transmission Date: 20150821
  Serious: No
  Sender: FDA-Public Use
  Company Number: US-009507513-1502USA010681

PATIENT
  Sex: Female
  Weight: 113.38 kg

DRUGS (1)
  1. IMPLANON [Suspect]
     Active Substance: ETONOGESTREL
     Dosage: IN THE OPPOSITE UNSPECIFIED ARM
     Route: 059

REACTIONS (3)
  - Device difficult to use [Not Recovered/Not Resolved]
  - Limb discomfort [Not Recovered/Not Resolved]
  - Medical device complication [Not Recovered/Not Resolved]
